FAERS Safety Report 5757927-8 (Version None)
Quarter: 2008Q2

REPORT INFORMATION
  Report Type: 
  Country: None (occurrence: None)
  Receive Date: 20080602
  Receipt Date: 20080602
  Transmission Date: 20081010
  Serious: Yes (Other)
  Sender: FDA-Public Use
  Company Number: None

PATIENT
  Age: 44 Year
  Sex: Female
  Weight: 99.7913 kg

DRUGS (1)
  1. LEVAQUIN [Suspect]
     Indication: SINUSITIS
     Dosage: 750MG QD
     Dates: start: 20061003, end: 20061008

REACTIONS (6)
  - AUTOIMMUNE DISORDER [None]
  - FRACTURE [None]
  - MUSCULOSKELETAL STIFFNESS [None]
  - NUCLEAR MAGNETIC RESONANCE IMAGING ABNORMAL [None]
  - PAIN IN EXTREMITY [None]
  - TENDON PAIN [None]
